FAERS Safety Report 20187751 (Version 1)
Quarter: 2021Q4

REPORT INFORMATION
  Report Type: Spontaneous
  Country: NL (occurrence: NL)
  Receive Date: 20211215
  Receipt Date: 20211215
  Transmission Date: 20220303
  Serious: Yes (Life-Threatening, Other)
  Sender: FDA-Public Use
  Company Number: NL-SIN-2021-11-15-238

PATIENT
  Age: 53 Year
  Sex: Male

DRUGS (2)
  1. MORPHINE SULFATE [Suspect]
     Active Substance: MORPHINE SULFATE
     Indication: Neuralgia
     Dosage: 1.2 MG, DAILY (INTRATHECAL MORPHINE OF 1.2 MG/ DAY)
     Route: 037
  2. BACLOFEN [Suspect]
     Active Substance: BACLOFEN
     Indication: Muscle spasticity
     Dosage: ITB OF 192 MCG/DAY
     Route: 037

REACTIONS (7)
  - Withdrawal syndrome [Recovered/Resolved]
  - Subarachnoid haemorrhage [Unknown]
  - Autonomic dysreflexia [Recovered/Resolved]
  - Posterior reversible encephalopathy syndrome [Recovered/Resolved]
  - Neuralgia [Recovered/Resolved]
  - Implant site abscess [Unknown]
  - Catheter site cellulitis [Recovered/Resolved]
